FAERS Safety Report 12147769 (Version 1)
Quarter: 2016Q1

REPORT INFORMATION
  Report Type: Spontaneous
  Country: GB (occurrence: GB)
  Receive Date: 20160304
  Receipt Date: 20160304
  Transmission Date: 20160526
  Serious: Yes (Hospitalization)
  Sender: FDA-Public Use
  Company Number: GB-PFIZER INC-2016138783

PATIENT
  Age: 5 Decade
  Sex: Male

DRUGS (4)
  1. SERTRALINE HCL [Suspect]
     Active Substance: SERTRALINE HYDROCHLORIDE
     Dosage: UNK
  2. FLUPENTIXOL DECANOATE [Suspect]
     Active Substance: FLUPENTIXOL DECANOATE
     Dosage: 400 MG, UNK (EVERY TWO WEEKS, DEPOT INJECTION)
  3. RISPERIDONE. [Suspect]
     Active Substance: RISPERIDONE
     Dosage: 4 MG, DAILY
  4. QUETIAPINE FUMARATE. [Suspect]
     Active Substance: QUETIAPINE FUMARATE
     Dosage: UNK
     Route: 048

REACTIONS (1)
  - Neuroleptic malignant syndrome [Recovered/Resolved]
